FAERS Safety Report 4379644-1 (Version None)
Quarter: 2004Q2

REPORT INFORMATION
  Report Type: 
  Country: None (occurrence: None)
  Receive Date: 20040614
  Receipt Date: 20040601
  Transmission Date: 20050107
  Serious: Yes (Hospitalization, Other)
  Sender: FDA-Public Use
  Company Number: US-JNJFOC-20040600886

PATIENT
  Age: 30 Year
  Sex: Female
  Weight: 71.6683 kg

DRUGS (1)
  1. ORTHO EVRA [Suspect]
     Indication: CONTRACEPTION
     Dosage: 1 DOSE9S), 3 IN 4 WEEK, TRANSDERMAL
     Route: 062
     Dates: start: 20040521

REACTIONS (5)
  - DEHYDRATION [None]
  - DRUG EXPOSURE DURING PREGNANCY [None]
  - FEELING ABNORMAL [None]
  - UNINTENDED PREGNANCY [None]
  - VOMITING [None]
